FAERS Safety Report 6206630-9 (Version None)
Quarter: 2009Q2

REPORT INFORMATION
  Report Type: 
  Country: None (occurrence: None)
  Receive Date: 20090528
  Receipt Date: 20090521
  Transmission Date: 20091009
  Serious: Yes (Other)
  Sender: FDA-Public Use
  Company Number: US-BAXTER-2008BH003839

PATIENT
  Age: 15 Year
  Sex: Male

DRUGS (5)
  1. FEIBA VH IMMUNO [Suspect]
     Indication: FACTOR VIII DEFICIENCY
     Route: 042
     Dates: start: 19950101
  2. NOVOSEVEN [Suspect]
     Indication: FACTOR VIII DEFICIENCY
     Route: 042
  3. RITUXAN [Concomitant]
     Indication: DRUG USE FOR UNKNOWN INDICATION
  4. CYTOXAN [Concomitant]
     Indication: DRUG USE FOR UNKNOWN INDICATION
  5. METHADONE [Concomitant]
     Indication: DRUG USE FOR UNKNOWN INDICATION
     Route: 048

REACTIONS (5)
  - FACTOR VIII INHIBITION [None]
  - HEADACHE [None]
  - NAUSEA [None]
  - VISION BLURRED [None]
  - VOMITING [None]
